FAERS Safety Report 6094124-3 (Version None)
Quarter: 2009Q1

REPORT INFORMATION
  Report Type: 
  Country: None (occurrence: None)
  Receive Date: 20090226
  Receipt Date: 20090213
  Transmission Date: 20090719
  Serious: Yes (Other)
  Sender: FDA-Public Use
  Company Number: JP-ROCHE-615849

PATIENT
  Age: 69 Year
  Sex: Male
  Weight: 47 kg

DRUGS (1)
  1. TAMIFLU [Suspect]
     Indication: INFLUENZA
     Route: 048
     Dates: start: 20090204, end: 20090206

REACTIONS (1)
  - ABNORMAL BEHAVIOUR [None]
